FAERS Safety Report 17372373 (Version 1)
Quarter: 2020Q1

REPORT INFORMATION
  Report Type: Spontaneous
  Country: US (occurrence: US)
  Receive Date: 20200205
  Receipt Date: 20200205
  Transmission Date: 20200409
  Serious: Yes (Hospitalization)
  Sender: FDA-Public Use
  Company Number: US-NOVOPROD-710179

PATIENT
  Age: 46 Year
  Sex: Female

DRUGS (4)
  1. FIASP [Suspect]
     Active Substance: INSULIN ASPART
     Indication: TYPE 1 DIABETES MELLITUS
     Dosage: SLIDING SCALE
     Route: 058
     Dates: start: 2019
  2. ARMOUR THYROID [Concomitant]
     Active Substance: THYROID, PORCINE
     Indication: HYPOTHYROIDISM
     Dosage: UNK
     Route: 048
  3. FIASP [Suspect]
     Active Substance: INSULIN ASPART
     Indication: DIABETES MELLITUS INADEQUATE CONTROL
     Dosage: INCREASED DOSE
     Route: 058
  4. TOPROL XL [Concomitant]
     Active Substance: METOPROLOL SUCCINATE
     Indication: HEART RATE INCREASED
     Dosage: UNK
     Route: 048

REACTIONS (4)
  - Diabetic ketoacidosis [Recovered/Resolved]
  - Therapeutic product effect decreased [Not Recovered/Not Resolved]
  - Infection [Recovered/Resolved]
  - Diabetes mellitus inadequate control [Not Recovered/Not Resolved]

NARRATIVE: CASE EVENT DATE: 2019
